FAERS Safety Report 12648397 (Version 4)
Quarter: 2017Q4

REPORT INFORMATION
  Report Type: Spontaneous
  Country: FR (occurrence: FR)
  Receive Date: 20160812
  Receipt Date: 20171211
  Transmission Date: 20180320
  Serious: Yes (Disabling, Other)
  Sender: FDA-Public Use
  Company Number: FR-OTSUKA-2016_019582

PATIENT
  Age: 44 Year
  Sex: Male

DRUGS (7)
  1. ABILIFY MAINTENA [Suspect]
     Active Substance: ARIPIPRAZOLE
     Indication: SCHIZOPHRENIA
     Dosage: 400 MG, QM
     Route: 030
     Dates: start: 20160413
  2. ABILIFY [Suspect]
     Active Substance: ARIPIPRAZOLE
     Dosage: 15 MG, BID
     Route: 065
     Dates: end: 201603
  3. ABILIFY [Suspect]
     Active Substance: ARIPIPRAZOLE
     Indication: PRODUCT USED FOR UNKNOWN INDICATION
     Dosage: UNK
     Route: 065
     Dates: start: 20151125
  4. MIRTAZAPINE. [Concomitant]
     Active Substance: MIRTAZAPINE
     Indication: PRODUCT USED FOR UNKNOWN INDICATION
     Dosage: 15 MG, QD
     Route: 048
  5. ABILIFY MAINTENA [Suspect]
     Active Substance: ARIPIPRAZOLE
     Indication: SCHIZOPHRENIA
     Dosage: 400 MG, Q4WK
     Route: 030
     Dates: start: 20160413
  6. NORSET [Concomitant]
     Active Substance: MIRTAZAPINE
     Indication: PRODUCT USED FOR UNKNOWN INDICATION
     Dosage: 15 MG, 1 TAB IN THE EVENING
     Route: 048
  7. NOCTAMIDE [Concomitant]
     Active Substance: LORMETAZEPAM
     Indication: INSOMNIA
     Dosage: 2 MG, 1 TAB IN THE EVENING
     Route: 048

REACTIONS (2)
  - Periarthritis [Not Recovered/Not Resolved]
  - Off label use [Unknown]

NARRATIVE: CASE EVENT DATE: 201607
